FAERS Safety Report 5425663-3 (Version None)
Quarter: 2007Q3

REPORT INFORMATION
  Report Type: 
  Country: None (occurrence: None)
  Receive Date: 20070726
  Receipt Date: 20070608
  Transmission Date: 20080115
  Serious: No
  Sender: FDA-Public Use
  Company Number: POMP-11085

PATIENT
  Age: 25 Year
  Sex: Female
  Weight: 70 kg

DRUGS (3)
  1. MYOZYME [Suspect]
     Indication: GLYCOGEN STORAGE DISEASE TYPE II
     Dosage: 20 MG, KG, Q2WKS; IV
     Route: 042
     Dates: start: 20070209
  2. BIRTH CONTROL [Concomitant]
  3. HYDROCODONE BITARTRATE [Concomitant]

REACTIONS (2)
  - FEELING HOT [None]
  - FLUSHING [None]
